FAERS Safety Report 15544622 (Version 2)
Quarter: 2018Q4

REPORT INFORMATION
  Report Type: Spontaneous
  Country: FR (occurrence: FR)
  Receive Date: 20181024
  Receipt Date: 20181116
  Transmission Date: 20190205
  Serious: Yes (Hospitalization)
  Sender: FDA-Public Use
  Company Number: FR-ROCHE-2204233

PATIENT
  Age: 61 Year
  Sex: Female

DRUGS (2)
  1. ROACTEMRA [Suspect]
     Active Substance: TOCILIZUMAB
     Indication: RHEUMATOID ARTHRITIS
     Dosage: 1 DF MOST RECENT DOSE ON 26/JUL/2018
     Route: 058
     Dates: start: 20160707
  2. CORTANCYL [Suspect]
     Active Substance: PREDNISONE
     Indication: RHEUMATOID ARTHRITIS
     Dosage: 5 MG
     Route: 048
     Dates: start: 20141215, end: 201808

REACTIONS (1)
  - Whipple^s disease [Recovering/Resolving]

NARRATIVE: CASE EVENT DATE: 201807
